FAERS Safety Report 8013565-8 (Version None)
Quarter: 2011Q4

REPORT INFORMATION
  Report Type: 
  Country: None (occurrence: None)
  Receive Date: 20111227
  Receipt Date: 20111227
  Transmission Date: 20120403
  Serious: Yes (Hospitalization)
  Sender: FDA-Public Use
  Company Number: None

PATIENT
  Age: 87 Year
  Sex: Male
  Weight: 85 kg

DRUGS (1)
  1. HYDROXYUREA [Suspect]
     Dosage: 500 MG TID PO
     Route: 048
     Dates: start: 20110820, end: 20111013

REACTIONS (3)
  - ERYTHEMA MULTIFORME [None]
  - PRURITUS [None]
  - URTICARIA [None]
